FAERS Safety Report 8601708 (Version 4)
Quarter: 2013Q3

REPORT INFORMATION
  Report Type: Report from Study
  Country: BR (occurrence: BR)
  Receive Date: 20120606
  Receipt Date: 20130712
  Transmission Date: 20140515
  Serious: Yes (Other)
  Sender: FDA-Public Use
  Company Number: BR-ROCHE-1074820

PATIENT
  Sex: Female

DRUGS (15)
  1. RITUXIMAB [Suspect]
     Indication: RHEUMATOID ARTHRITIS
     Route: 065
     Dates: start: 201112
  2. RITUXIMAB [Suspect]
     Route: 042
     Dates: start: 20120425
  3. RITUXIMAB [Suspect]
     Route: 065
     Dates: start: 20120524
  4. RITUXIMAB [Suspect]
     Route: 065
     Dates: start: 201211
  5. ACTEMRA [Concomitant]
     Indication: RHEUMATOID ARTHRITIS
     Route: 065
  6. PREDNISONE [Concomitant]
     Route: 065
  7. OMEPRAZOLE [Concomitant]
     Route: 065
  8. PLAQUENIL [Concomitant]
     Route: 065
  9. CALTRATE [Concomitant]
  10. ALENDRONATE [Concomitant]
     Route: 065
  11. MAREVAN [Concomitant]
  12. RISEDRONATE [Concomitant]
  13. BENADRYL [Concomitant]
     Indication: PREMEDICATION
  14. DIPYRONE [Concomitant]
     Indication: PREMEDICATION
  15. CELLCEPT [Concomitant]
     Route: 065

REACTIONS (4)
  - Pleural effusion [Recovered/Resolved]
  - Pneumonia [Recovered/Resolved]
  - Nausea [Recovered/Resolved]
  - Drug ineffective [Unknown]
